FAERS Safety Report 24408270 (Version 1)
Quarter: 2024Q4

REPORT INFORMATION
  Report Type: Spontaneous
  Country: FR (occurrence: FR)
  Receive Date: 20241007
  Receipt Date: 20241007
  Transmission Date: 20250114
  Serious: Yes (Hospitalization)
  Sender: BAYER
  Company Number: None

PATIENT
  Age: 67 Year
  Sex: Male
  Weight: 85 kg

DRUGS (1)
  1. STIVARGA [Suspect]
     Active Substance: REGORAFENIB MONOHYDRATE
     Indication: Colon cancer
     Dosage: UNK
     Route: 048
     Dates: start: 20240816, end: 20240920

REACTIONS (1)
  - Hyperammonaemic encephalopathy [Recovered/Resolved]

NARRATIVE: CASE EVENT DATE: 20240916
